FAERS Safety Report 9428322 (Version 1)
Quarter: 2013Q3

REPORT INFORMATION
  Report Type: Spontaneous
  Country: US (occurrence: US)
  Receive Date: 20130730
  Receipt Date: 20130730
  Transmission Date: 20140515
  Serious: No
  Sender: FDA-Public Use
  Company Number: US-BAYER-2013-089035

PATIENT
  Age: 19 Year
  Sex: Female

DRUGS (1)
  1. SKYLA [Suspect]
     Dosage: UNK
     Route: 015
     Dates: start: 20130702, end: 20130702

REACTIONS (4)
  - Device difficult to use [None]
  - Presyncope [None]
  - Procedural pain [None]
  - Procedural pain [None]
